FAERS Safety Report 25840368 (Version 2)
Quarter: 2025Q4

REPORT INFORMATION
  Report Type: Spontaneous
  Country: EU (occurrence: EU)
  Receive Date: 20250924
  Receipt Date: 20251008
  Transmission Date: 20260118
  Serious: Yes (Other)
  Sender: AUROBINDO
  Company Number: EU-MLMSERVICE-20250905-PI633022-00152-1

PATIENT
  Age: 62 Year
  Sex: Male

DRUGS (21)
  1. FOLIC ACID [Suspect]
     Active Substance: FOLIC ACID
     Indication: Rectal adenocarcinoma
     Route: 065
     Dates: start: 202204, end: 202312
  2. FOLIC ACID [Suspect]
     Active Substance: FOLIC ACID
     Indication: Metastases to liver
  3. FOLIC ACID [Suspect]
     Active Substance: FOLIC ACID
     Indication: Metastases to lymph nodes
  4. OXALIPLATIN [Suspect]
     Active Substance: OXALIPLATIN
     Indication: Rectal adenocarcinoma
     Route: 065
     Dates: start: 202204, end: 202312
  5. OXALIPLATIN [Suspect]
     Active Substance: OXALIPLATIN
     Indication: Metastases to liver
  6. OXALIPLATIN [Suspect]
     Active Substance: OXALIPLATIN
     Indication: Metastases to lymph nodes
  7. IRINOTECAN [Suspect]
     Active Substance: IRINOTECAN
     Indication: Rectal adenocarcinoma
     Route: 065
  8. IRINOTECAN [Suspect]
     Active Substance: IRINOTECAN
     Indication: Metastases to liver
  9. IRINOTECAN [Suspect]
     Active Substance: IRINOTECAN
     Indication: Metastases to lymph nodes
  10. FLUOROURACIL [Suspect]
     Active Substance: FLUOROURACIL
     Indication: Rectal adenocarcinoma
     Route: 065
     Dates: start: 202204, end: 202312
  11. FLUOROURACIL [Suspect]
     Active Substance: FLUOROURACIL
     Indication: Metastases to liver
  12. FLUOROURACIL [Suspect]
     Active Substance: FLUOROURACIL
     Indication: Metastases to lymph nodes
  13. PANITUMUMAB [Suspect]
     Active Substance: PANITUMUMAB
     Indication: Rectal adenocarcinoma
     Route: 065
     Dates: start: 202204, end: 202312
  14. PANITUMUMAB [Suspect]
     Active Substance: PANITUMUMAB
     Indication: Metastases to liver
  15. PANITUMUMAB [Suspect]
     Active Substance: PANITUMUMAB
     Indication: Metastases to lymph nodes
  16. AFLIBERCEPT [Suspect]
     Active Substance: AFLIBERCEPT
     Indication: Rectal adenocarcinoma
     Dosage: UNK
     Route: 065
  17. AFLIBERCEPT [Suspect]
     Active Substance: AFLIBERCEPT
     Indication: Metastases to liver
  18. AFLIBERCEPT [Suspect]
     Active Substance: AFLIBERCEPT
     Indication: Metastases to lymph nodes
  19. BEVACIZUMAB [Concomitant]
     Active Substance: BEVACIZUMAB
     Indication: Rectal adenocarcinoma
     Dosage: UNK
     Route: 065
  20. TIPIRACIL HYDROCHLORIDE\TRIFLURIDINE [Concomitant]
     Active Substance: TIPIRACIL HYDROCHLORIDE\TRIFLURIDINE
     Indication: Rectal adenocarcinoma
     Dosage: UNK
     Route: 065
  21. REGORAFENIB [Concomitant]
     Active Substance: REGORAFENIB
     Indication: Rectal adenocarcinoma
     Dosage: UNK
     Route: 065

REACTIONS (5)
  - Neuropathy peripheral [Unknown]
  - Rash [Unknown]
  - Drug resistance [Unknown]
  - Weight decreased [Unknown]
  - Diarrhoea [Unknown]
